FAERS Safety Report 5300316-0 (Version None)
Quarter: 2007Q2

REPORT INFORMATION
  Report Type: 
  Country: None (occurrence: None)
  Receive Date: 20070418
  Receipt Date: 20070405
  Transmission Date: 20071010
  Serious: Yes (Hospitalization)
  Sender: FDA-Public Use
  Company Number: PHRM2007FR01092

PATIENT
  Age: 86 Year
  Sex: Female
  Weight: 40 kg

DRUGS (6)
  1. TAREG [Suspect]
     Dosage: 40 MG, QD
     Route: 048
     Dates: end: 20070123
  2. LERCAN [Suspect]
     Dosage: 10 MG, QD
     Route: 048
     Dates: start: 20060115, end: 20070123
  3. TOPALGIC ^HOUDE^ [Suspect]
     Dosage: 300 MG PER DAY
     Route: 048
     Dates: end: 20070123
  4. DOLIPRANE [Concomitant]
     Dosage: 3 G PER DAY
     Route: 048
  5. LOVENOX [Concomitant]
     Dosage: 2000 U, QD
     Route: 058
     Dates: start: 20061121, end: 20070123
  6. MEMANTINE HCL [Concomitant]
     Dosage: 20 MG PER DAY
     Route: 048
     Dates: start: 20060115, end: 20070123

REACTIONS (11)
  - ANAEMIA [None]
  - FALL [None]
  - HAEMOGLOBIN DECREASED [None]
  - HEAD INJURY [None]
  - HIATUS HERNIA [None]
  - HYPERHIDROSIS [None]
  - HYPOTENSION [None]
  - PAIN [None]
  - PYREXIA [None]
  - THROMBOCYTOPENIA [None]
  - TRAUMATIC HAEMATOMA [None]
